FAERS Safety Report 11323292 (Version 1)
Quarter: 2015Q3

REPORT INFORMATION
  Report Type: Spontaneous
  Country: FR (occurrence: FR)
  Receive Date: 20150730
  Receipt Date: 20150730
  Transmission Date: 20151125
  Serious: Yes (Life-Threatening, Hospitalization)
  Sender: FDA-Public Use
  Company Number: FR-PFIZER INC-FR-WYE-G02170908

PATIENT
  Age: 3 Year
  Sex: Male
  Weight: 14 kg

DRUGS (6)
  1. BRONCHOTHIOL [Suspect]
     Active Substance: CARBOCYSTEINE
     Dosage: UNK
     Route: 048
     Dates: start: 20080804, end: 20080808
  2. FANSIDAR [Suspect]
     Active Substance: PYRIMETHAMINE\SULFADOXINE
     Indication: MALARIA
     Dosage: UNKNOWN
     Route: 048
     Dates: start: 20080720, end: 20080727
  3. CO-ARTESIANE [Suspect]
     Active Substance: ARTEMETHER\LUMEFANTRINE
     Indication: MALARIA
     Dosage: UNK
     Dates: start: 20080804, end: 20080808
  4. PARFENAC [Suspect]
     Active Substance: BUFEXAMAC
     Dosage: UNKNOWN
     Route: 061
     Dates: start: 20080804, end: 20080808
  5. ADVIL [Concomitant]
     Active Substance: IBUPROFEN
     Dosage: UNK
     Route: 048
     Dates: start: 20080804, end: 20080808
  6. MEFOXIN [Suspect]
     Active Substance: CEFOXITIN SODIUM
     Dosage: UNK
     Dates: start: 20080804, end: 20080808

REACTIONS (17)
  - Toxic epidermal necrolysis [Recovered/Resolved with Sequelae]
  - Cholestasis [Not Recovered/Not Resolved]
  - Hypertensive crisis [Recovered/Resolved]
  - Laryngeal oedema [Unknown]
  - Diarrhoea [Unknown]
  - Klebsiella infection [Not Recovered/Not Resolved]
  - Lip haemorrhage [Unknown]
  - Candida infection [Unknown]
  - Skin bacterial infection [Unknown]
  - General physical health deterioration [Recovering/Resolving]
  - Feeding disorder [Unknown]
  - Pseudomonas infection [Unknown]
  - Enterococcal infection [Unknown]
  - Gastrointestinal injury [Unknown]
  - Hepatocellular injury [Recovered/Resolved]
  - Acinetobacter infection [Unknown]
  - Fungal skin infection [Unknown]

NARRATIVE: CASE EVENT DATE: 200808
